FAERS Safety Report 17439727 (Version 1)
Quarter: 2020Q1

REPORT INFORMATION
  Report Type: Spontaneous
  Country: US (occurrence: US)
  Receive Date: 20200219
  Receipt Date: 20200219
  Transmission Date: 20200409
  Serious: Yes (Other)
  Sender: FDA-Public Use
  Company Number: None

PATIENT
  Age: 15 Year
  Sex: Male
  Weight: 54 kg

DRUGS (1)
  1. REMERON [Suspect]
     Active Substance: MIRTAZAPINE
     Indication: INSOMNIA
     Route: 048
     Dates: start: 20181201, end: 20190601

REACTIONS (11)
  - Major depression [None]
  - Chest pain [None]
  - Crying [None]
  - Antisocial behaviour [None]
  - Suicide threat [None]
  - Insomnia [None]
  - Tremor [None]
  - Weight increased [None]
  - Product use issue [None]
  - Anger [None]
  - Anxiety [None]

NARRATIVE: CASE EVENT DATE: 20190101
